FAERS Safety Report 8559259-1 (Version None)
Quarter: 2012Q3

REPORT INFORMATION
  Report Type: 
  Country: None (occurrence: None)
  Receive Date: 20120720
  Receipt Date: 20120712
  Transmission Date: 20120928
  Serious: Yes (Life-Threatening, Hospitalization)
  Sender: FDA-Public Use
  Company Number: 2012CP000076

PATIENT
  Age: 82 Year
  Sex: Male

DRUGS (11)
  1. ASPIRIN [Concomitant]
  2. ESOMEPRAZOLE [Concomitant]
  3. MOLSIDOMINE [Concomitant]
  4. NITROGLYCERIN [Concomitant]
  5. ACETAMINOPHEN [Suspect]
     Dosage: 1 DOSAGE FORM; IV
     Route: 042
     Dates: start: 20120605, end: 20120618
  6. PIPERACILLIN AND TAZOBACTAM [Suspect]
     Dates: start: 20120605, end: 20120618
  7. LOVENOX [Concomitant]
  8. IRBESARTAN [Concomitant]
  9. ATORVASTATIN [Concomitant]
  10. SECTRAL [Concomitant]
  11. AUGMENTIN '125' [Suspect]
     Dates: start: 20120614, end: 20120618

REACTIONS (4)
  - HYPERTHERMIA [None]
  - NEUTROPENIA [None]
  - LYMPHOCYTE COUNT INCREASED [None]
  - WHITE BLOOD CELL COUNT INCREASED [None]
